FAERS Safety Report 5766487-7 (Version None)
Quarter: 2008Q2

REPORT INFORMATION
  Report Type: 
  Country: None (occurrence: None)
  Receive Date: 20080606
  Receipt Date: 20080527
  Transmission Date: 20081010
  Serious: Yes (Other)
  Sender: FDA-Public Use
  Company Number: 2008SP010025

PATIENT
  Age: 50 Year
  Sex: Male

DRUGS (18)
  1. DESLORATADINE [Suspect]
     Indication: HYPERSENSITIVITY
     Dosage: 1 DF;QD;PO
     Route: 048
     Dates: start: 20080419
  2. OMEPRAZOLE [Suspect]
     Indication: DRUG USE FOR UNKNOWN INDICATION
     Dosage: 1 DF;QD;PO
     Route: 048
     Dates: start: 20080413, end: 20080413
  3. VALSARTAN [Suspect]
     Indication: HYPERTENSION
     Dosage: SEE IMAGE
     Dates: end: 20080411
  4. VALSARTAN [Suspect]
     Indication: HYPERTENSION
     Dosage: SEE IMAGE
     Dates: start: 20080416
  5. PANTOPRAZOLE SODIUM [Suspect]
     Indication: DRUG USE FOR UNKNOWN INDICATION
     Dosage: 1 DF;QD;PO
     Route: 048
     Dates: start: 20080414
  6. ESIDRIX [Suspect]
     Indication: HYPERTENSION
     Dosage: 1 DF; QD; PO
     Route: 048
     Dates: end: 20080411
  7. ESIDRIX [Suspect]
     Indication: HYPERTENSION
     Dosage: 1 DF; QD; PO
     Route: 048
     Dates: start: 20080420
  8. ACETAMINOPHEN W/ PROPOXYPHENE HCL [Suspect]
     Indication: PAIN
     Dosage: 1 DF; QD; PO
     Route: 048
     Dates: start: 20080414
  9. PLAVIX [Suspect]
     Indication: DRUG USE FOR UNKNOWN INDICATION
     Dosage: 1 DF;QD;PO
     Route: 048
     Dates: start: 20080417
  10. BISOPROLOL FUMARATE [Suspect]
     Indication: DRUG USE FOR UNKNOWN INDICATION
     Dosage: 1 DF;QD;PO
     Route: 048
     Dates: start: 20080417
  11. HUMALOG [Concomitant]
  12. ALLOPURINOL [Concomitant]
  13. POTASSIUM CHLORIDE [Concomitant]
  14. AMLODIPINE [Concomitant]
  15. LASIX [Concomitant]
  16. RANITIDINE [Concomitant]
  17. ACETAMINOPHEN [Concomitant]
  18. LACTULOSE [Concomitant]

REACTIONS (8)
  - DEFICIENCY ANAEMIA [None]
  - ERYSIPELAS [None]
  - HYPERSENSITIVITY [None]
  - HYPOTHYROIDISM [None]
  - LEUKOPENIA [None]
  - LYMPHOCYTE COUNT DECREASED [None]
  - NEUTROPENIA [None]
  - PAIN [None]
